FAERS Safety Report 21528898 (Version 2)
Quarter: 2022Q4

REPORT INFORMATION
  Report Type: Report from Study
  Country: FI (occurrence: FI)
  Receive Date: 20221031
  Receipt Date: 20221104
  Transmission Date: 20230112
  Serious: Yes (Hospitalization, Other)
  Sender: FDA-Public Use
  Company Number: FI-MYLANLABS-2022M1118481

PATIENT
  Age: 33 Year
  Sex: Female

DRUGS (4)
  1. CLOZAPINE [Suspect]
     Active Substance: CLOZAPINE
     Indication: Product used for unknown indication
     Dosage: UNK
     Route: 065
  2. CLOZAPINE [Suspect]
     Active Substance: CLOZAPINE
     Dosage: UNK
     Route: 065
  3. CLOZAPINE [Suspect]
     Active Substance: CLOZAPINE
     Dosage: UNK
     Route: 065
  4. LITHIUM CARBONATE [Concomitant]
     Active Substance: LITHIUM CARBONATE
     Dosage: UNK
     Route: 065

REACTIONS (7)
  - Hospitalisation [Unknown]
  - Neutrophil count decreased [Recovered/Resolved]
  - White blood cell count decreased [Recovered/Resolved]
  - Treatment noncompliance [Unknown]
  - Drug ineffective [Unknown]
  - Therapy cessation [Unknown]
  - Off label use [Unknown]

NARRATIVE: CASE EVENT DATE: 20060101
